FAERS Safety Report 5479094-0 (Version None)
Quarter: 2007Q4

REPORT INFORMATION
  Report Type: 
  Country: None (occurrence: None)
  Receive Date: 20071006
  Receipt Date: 20070928
  Transmission Date: 20080405
  Serious: Yes (Other)
  Sender: FDA-Public Use
  Company Number: US-PFIZER INC-2007081456

PATIENT
  Sex: Female
  Weight: 58.1 kg

DRUGS (16)
  1. LIPITOR [Suspect]
     Indication: BLOOD CHOLESTEROL
  2. ACETYLSALICYLIC ACID [Concomitant]
  3. BACLOFEN [Concomitant]
  4. FOSAMAX [Concomitant]
     Dosage: TEXT:70 MG
  5. NIACIN [Concomitant]
  6. LANOXIN [Concomitant]
  7. LANTUS [Concomitant]
  8. LASIX [Concomitant]
  9. LEVAQUIN [Concomitant]
  10. LEVOTHYROXINE SODIUM [Concomitant]
  11. LORTAB [Concomitant]
  12. NEURONTIN [Concomitant]
  13. NORVASC [Concomitant]
  14. REGLAN [Concomitant]
  15. PRILOSEC [Concomitant]
  16. AMBIEN [Concomitant]

REACTIONS (2)
  - CARDIAC DISORDER [None]
  - MYOCARDIAL INFARCTION [None]
